FAERS Safety Report 11917913 (Version 5)
Quarter: 2017Q1

REPORT INFORMATION
  Report Type: Spontaneous
  Country: US (occurrence: US)
  Receive Date: 20160114
  Receipt Date: 20170131
  Transmission Date: 20170428
  Serious: No
  Sender: FDA-Public Use
  Company Number: US-PFIZER INC-2016015258

PATIENT
  Age: 46 Year
  Sex: Female
  Weight: 73 kg

DRUGS (1)
  1. LEVOXYL [Suspect]
     Active Substance: LEVOTHYROXINE SODIUM
     Indication: HYPOTHYROIDISM
     Dosage: 85-88 UG, 1X/DAY
     Dates: start: 201402, end: 201601

REACTIONS (14)
  - Abdominal distension [Unknown]
  - Malaise [Unknown]
  - Hypovitaminosis [Not Recovered/Not Resolved]
  - Dyspepsia [Unknown]
  - Cognitive disorder [Unknown]
  - Drug effect incomplete [Unknown]
  - Extrasystoles [Unknown]
  - Palpitations [Unknown]
  - Constipation [Not Recovered/Not Resolved]
  - Drug intolerance [Unknown]
  - Product quality issue [Unknown]
  - Weight increased [Unknown]
  - Insomnia [Not Recovered/Not Resolved]
  - Mineral deficiency [Not Recovered/Not Resolved]

NARRATIVE: CASE EVENT DATE: 2014
